FAERS Safety Report 12989260 (Version 1)
Quarter: 2016Q4

REPORT INFORMATION
  Report Type: Spontaneous
  Country: CN (occurrence: CN)
  Receive Date: 20161201
  Receipt Date: 20161201
  Transmission Date: 20170207
  Serious: Yes (Other)
  Sender: FDA-Public Use
  Company Number: CN-009507513-1611CHN014282

PATIENT
  Age: 68 Year
  Sex: Male

DRUGS (1)
  1. DIPROSPAN [Suspect]
     Active Substance: BETAMETHASONE DIPROPIONATE\BETAMETHASONE SODIUM PHOSPHATE
     Indication: ECZEMA
     Dosage: 7 MG, UNK
     Route: 030
     Dates: start: 20161123

REACTIONS (3)
  - Palpitations [Recovered/Resolved]
  - Hypertensive crisis [Recovered/Resolved]
  - Blood glucose abnormal [Recovered/Resolved]

NARRATIVE: CASE EVENT DATE: 201611
